FAERS Safety Report 6702965-1 (Version None)
Quarter: 2010Q2

REPORT INFORMATION
  Report Type: 
  Country: None (occurrence: None)
  Receive Date: 20100429
  Receipt Date: 20100429
  Transmission Date: 20101027
  Serious: Yes (Life-Threatening, Hospitalization)
  Sender: FDA-Public Use
  Company Number: None

PATIENT
  Age: 47 Year
  Sex: Male
  Weight: 48 kg

DRUGS (9)
  1. TENOFOVIR DISOPROXIL FUMARATE [Suspect]
     Indication: HIV INFECTION
     Dosage: 300MG DAILY PO
     Route: 048
  2. DIDANOSINE [Concomitant]
  3. ATAZANAVIR [Concomitant]
  4. RITONAVIR [Concomitant]
  5. EFAVIRENZ [Concomitant]
  6. DIVALPROEX EXTENDED-RELEASE [Concomitant]
  7. IBUPROFEN [Concomitant]
  8. DIPHENHYDRAMINE [Concomitant]
  9. ALPRAZOLAM [Concomitant]

REACTIONS (2)
  - FANCONI SYNDROME [None]
  - RENAL TUBULAR ACIDOSIS [None]
